FAERS Safety Report 17889304 (Version 1)
Quarter: 2020Q2

REPORT INFORMATION
  Report Type: Spontaneous
  Country: US (occurrence: US)
  Receive Date: 20200611
  Receipt Date: 20200611
  Transmission Date: 20200714
  Serious: Yes (Hospitalization)
  Sender: FDA-Public Use
  Company Number: None

PATIENT
  Sex: Female

DRUGS (31)
  1. DOXYCYCL [Concomitant]
  2. FLUTICASONE. [Concomitant]
     Active Substance: FLUTICASONE
  3. SIMVASTATIN. [Concomitant]
     Active Substance: SIMVASTATIN
  4. AZITHROMYCIN ANHYDROUS. [Concomitant]
     Active Substance: AZITHROMYCIN ANHYDROUS
  5. DILTIAZEM. [Concomitant]
     Active Substance: DILTIAZEM
  6. NITROFUR MAC [Concomitant]
     Active Substance: NITROFURANTOIN
  7. CLOTRIMAZOLE. [Concomitant]
     Active Substance: CLOTRIMAZOLE
  8. FLUCONAZOLE. [Concomitant]
     Active Substance: FLUCONAZOLE
  9. FUROSEMIDE. [Concomitant]
     Active Substance: FUROSEMIDE
  10. IPRATROPLIUM [Concomitant]
  11. MAG OXIDE [Concomitant]
     Active Substance: MAGNESIUM OXIDE
  12. OMEPRAZOLE. [Concomitant]
     Active Substance: OMEPRAZOLE
  13. OXYBUTYNIN. [Concomitant]
     Active Substance: OXYBUTYNIN CHLORIDE
  14. PREDNISONE. [Concomitant]
     Active Substance: PREDNISONE
  15. BREO ELLIPTA [Concomitant]
     Active Substance: FLUTICASONE FUROATE\VILANTEROL TRIFENATATE
  16. CLONAZEPAM. [Concomitant]
     Active Substance: CLONAZEPAM
  17. METFORMIN [Concomitant]
     Active Substance: METFORMIN HYDROCHLORIDE
  18. RANITIDINE. [Concomitant]
     Active Substance: RANITIDINE
  19. SYMBICORT [Concomitant]
     Active Substance: BUDESONIDE\FORMOTEROL FUMARATE DIHYDRATE
  20. ESBRIET [Suspect]
     Active Substance: PIRFENIDONE
     Indication: INTERSTITIAL LUNG DISEASE
     Dosage: ?          OTHER FREQUENCY:Q4WK;?
     Route: 048
     Dates: start: 20180803
  21. AMOX/K CLAV [Concomitant]
     Active Substance: AMOXICILLIN\CLAVULANATE POTASSIUM
  22. CEFDINIR. [Concomitant]
     Active Substance: CEFDINIR
  23. BENZONATATE. [Concomitant]
     Active Substance: BENZONATATE
  24. VIRTUSSIN AC [Concomitant]
     Active Substance: CODEINE PHOSPHATE\GUAIFENESIN
  25. DICYCLOMINE [Concomitant]
     Active Substance: DICYCLOMINE HYDROCHLORIDE
  26. HYC FAMOTIDINE [Concomitant]
  27. MELOXICAM. [Concomitant]
     Active Substance: MELOXICAM
  28. ROPINIROLE. [Concomitant]
     Active Substance: ROPINIROLE
  29. SERTRALINE [Concomitant]
     Active Substance: SERTRALINE HYDROCHLORIDE
  30. TERCONAZOLE. [Concomitant]
     Active Substance: TERCONAZOLE
  31. GABAPENTIN. [Concomitant]
     Active Substance: GABAPENTIN

REACTIONS (2)
  - Therapy interrupted [None]
  - Pneumonia [None]
